FAERS Safety Report 18283308 (Version 4)
Quarter: 2020Q4

REPORT INFORMATION
  Report Type: Report from Study
  Country: CO (occurrence: CO)
  Receive Date: 20200918
  Receipt Date: 20201001
  Transmission Date: 20210113
  Serious: Yes (Hospitalization, Other)
  Sender: FDA-Public Use
  Company Number: NVSC2020CO251156

PATIENT
  Sex: Female

DRUGS (2)
  1. KISQALI [Suspect]
     Active Substance: RIBOCICLIB
     Indication: BREAST CANCER METASTATIC
     Dosage: 600 MG, QD
     Route: 048
  2. FULVESTRANT. [Suspect]
     Active Substance: FULVESTRANT
     Indication: BREAST CANCER
     Dosage: UNK UNK, QMO
     Route: 065

REACTIONS (11)
  - Oropharyngeal discomfort [Unknown]
  - Metastases to lung [Unknown]
  - Eating disorder [Unknown]
  - Dyspepsia [Unknown]
  - Asthenia [Unknown]
  - Product dose omission issue [Unknown]
  - Odynophagia [Unknown]
  - Dysphagia [Not Recovered/Not Resolved]
  - Pleural effusion [Unknown]
  - Malaise [Unknown]
  - Weight decreased [Unknown]
